FAERS Safety Report 23800761 (Version 1)
Quarter: 2024Q2

REPORT INFORMATION
  Report Type: Spontaneous
  Country: US (occurrence: None)
  Receive Date: 20240426
  Receipt Date: 20240426
  Transmission Date: 20240716
  Serious: No
  Sender: FDA-Public Use
  Company Number: None

PATIENT
  Age: 42 Year
  Sex: Female

DRUGS (1)
  1. TIRZEPATIDE [Suspect]
     Active Substance: TIRZEPATIDE
     Indication: Weight decreased
     Dosage: OTHER QUANTITY : 1 3ML;?OTHER FREQUENCY : ONCE A WEEK;?
     Route: 058
     Dates: start: 20240424, end: 20240424

REACTIONS (3)
  - Product availability issue [None]
  - Product availability issue [None]
  - Drug ineffective [None]

NARRATIVE: CASE EVENT DATE: 20240424
